FAERS Safety Report 8791427 (Version 1)
Quarter: 2012Q4

REPORT INFORMATION
  Report Type: Spontaneous
  Country: US (occurrence: None)
  Receive Date: 20120914
  Receipt Date: 20120914
  Transmission Date: 20130627
  Serious: Yes (Other)
  Sender: FDA-Public Use
  Company Number: None

PATIENT
  Age: 75 Year
  Sex: Female
  Weight: 81.65 kg

DRUGS (2)
  1. AMITRIPTYLINE [Suspect]
     Dosage: 1 Pill Daily
  2. ALENDRONATE [Suspect]
     Dosage: 1 Pill Once a Week

REACTIONS (1)
  - Haemorrhage [None]
